FAERS Safety Report 5557641-8 (Version None)
Quarter: 2007Q4

REPORT INFORMATION
  Report Type: 
  Country: None (occurrence: None)
  Receive Date: 20071214
  Receipt Date: 20071204
  Transmission Date: 20080405
  Serious: Yes (Other)
  Sender: FDA-Public Use
  Company Number: B0499485A

PATIENT
  Sex: Female

DRUGS (8)
  1. ZIDOVUDINE [Suspect]
     Indication: PROPHYLAXIS AGAINST HIV INFECTION
     Dosage: 4MGK PER DAY
     Route: 065
  2. LAMIVUDINE [Suspect]
     Indication: PROPHYLAXIS AGAINST HIV INFECTION
     Dosage: 4MGK PER DAY
     Route: 065
  3. LOPINAVIR [Suspect]
     Indication: PROPHYLAXIS AGAINST HIV INFECTION
     Dosage: 460MGM2 PER DAY
     Route: 065
  4. RITONAVIR [Suspect]
     Indication: PROPHYLAXIS AGAINST HIV INFECTION
     Dosage: 115MGM2 PER DAY
     Route: 065
  5. LAMIVUDINE [Suspect]
     Indication: HIV TEST POSITIVE
  6. LOPINAVIR AND RITONAVIR [Suspect]
     Indication: HIV TEST POSITIVE
  7. TENOFOVIR DISOPROXIL FUMARATE [Suspect]
     Indication: HIV TEST POSITIVE
  8. STEROIDS [Suspect]
     Indication: PREMATURE RUPTURE OF MEMBRANES

REACTIONS (6)
  - ARRHYTHMIA [None]
  - ATRIOVENTRICULAR BLOCK COMPLETE [None]
  - BLOOD LACTIC ACID INCREASED [None]
  - CARDIOMYOPATHY [None]
  - DRUG EXPOSURE DURING PREGNANCY [None]
  - PREMATURE BABY [None]
